FAERS Safety Report 16148170 (Version 8)
Quarter: 2019Q4

REPORT INFORMATION
  Report Type: Spontaneous
  Country: US (occurrence: US)
  Receive Date: 20190402
  Receipt Date: 20191002
  Transmission Date: 20200122
  Serious: Yes (Death, Hospitalization, Other)
  Sender: FDA-Public Use
  Company Number: US-PFIZER INC-2019140843

PATIENT
  Age: 83 Year
  Sex: Female
  Weight: 129 kg

DRUGS (19)
  1. XELJANZ [Suspect]
     Active Substance: TOFACITINIB CITRATE
     Dosage: 5 MG, 2X/DAY
     Route: 048
     Dates: start: 20130701, end: 2013
  2. XELJANZ [Suspect]
     Active Substance: TOFACITINIB CITRATE
     Dosage: 5 MG, 2X/DAY
     Route: 048
     Dates: start: 20130701, end: 2013
  3. VITAMIN D3 [Concomitant]
     Active Substance: CHOLECALCIFEROL
     Dosage: 1000 IU, UNK
  4. XARELTO [Concomitant]
     Active Substance: RIVAROXABAN
     Dosage: 20 MG, UNK
  5. DILTIAZEM. [Concomitant]
     Active Substance: DILTIAZEM
     Dosage: UNK
  6. PREDNISONE. [Concomitant]
     Active Substance: PREDNISONE
     Dosage: 20 MG, UNK
  7. XELJANZ [Suspect]
     Active Substance: TOFACITINIB CITRATE
     Dosage: 5 MG, 2X/DAY
     Route: 048
     Dates: start: 201307
  8. CRANBERRY. [Concomitant]
     Active Substance: CRANBERRY
     Dosage: 200 MG, UNK
  9. SILDENAFIL CITRATE. [Concomitant]
     Active Substance: SILDENAFIL CITRATE
     Dosage: UNK
  10. LEVOTHYROXINE SODIUM. [Concomitant]
     Active Substance: LEVOTHYROXINE SODIUM
     Dosage: 100 UG, UNK
  11. CARTIA XT [Concomitant]
     Active Substance: DILTIAZEM HYDROCHLORIDE
     Dosage: 120 MG, UNK (SR 24H)
  12. ACETAMINOPHEN AND CODEINE [Concomitant]
     Active Substance: ACETAMINOPHEN\CODEINE PHOSPHATE
     Dosage: UNK
  13. LASIX [Concomitant]
     Active Substance: FUROSEMIDE
     Dosage: 40 MG, UNK
  14. REVATIO [Concomitant]
     Active Substance: SILDENAFIL CITRATE
     Dosage: UNK
  15. CODEINE/PROMETHAZINE [Concomitant]
     Dosage: UNK
  16. OXYGEN. [Concomitant]
     Active Substance: OXYGEN
     Dosage: UNK
  17. XELJANZ [Suspect]
     Active Substance: TOFACITINIB CITRATE
     Indication: RHEUMATOID ARTHRITIS
     Dosage: 5 MG, 2X/DAY
     Route: 048
     Dates: start: 201305, end: 2013
  18. XELJANZ [Suspect]
     Active Substance: TOFACITINIB CITRATE
     Dosage: 5 MG, 2X/DAY
     Route: 048
     Dates: start: 20130701, end: 2013
  19. ORENITRAM [Concomitant]
     Active Substance: TREPROSTINIL
     Dosage: UNK

REACTIONS (14)
  - Fall [Unknown]
  - Ankle fracture [Recovering/Resolving]
  - Feeling abnormal [Unknown]
  - Amnesia [Unknown]
  - Endometrial cancer [Unknown]
  - Pulmonary hypertension [Unknown]
  - Headache [Not Recovered/Not Resolved]
  - Death [Fatal]
  - Pneumonia [Recovering/Resolving]
  - Dyspnoea [Unknown]
  - Diarrhoea [Unknown]
  - Nausea [Unknown]
  - Respiratory moniliasis [Unknown]
  - Fatigue [Not Recovered/Not Resolved]

NARRATIVE: CASE EVENT DATE: 201810
